FAERS Safety Report 6575251-0 (Version None)
Quarter: 2010Q1

REPORT INFORMATION
  Report Type: 
  Country: None (occurrence: None)
  Receive Date: 20100209
  Receipt Date: 20100201
  Transmission Date: 20100710
  Serious: Yes (Hospitalization)
  Sender: FDA-Public Use
  Company Number: SK-ROCHE-625125

PATIENT
  Sex: Male
  Weight: 68.5 kg

DRUGS (12)
  1. BEVACIZUMAB [Suspect]
     Indication: METASTATIC RENAL CELL CARCINOMA
     Route: 042
     Dates: start: 20081212
  2. BEVACIZUMAB [Suspect]
     Dosage: TREATMENT WAS ADMINISTERED ACCORDING TO PROTOCOL.
     Route: 042
  3. BEVACIZUMAB [Suspect]
     Route: 042
     Dates: start: 20090409
  4. TEMSIROLIMUS [Suspect]
     Indication: METASTATIC RENAL CELL CARCINOMA
     Dosage: FORM: CONCENTRATE FOR SOLUTION FOR INFUSION.
     Route: 042
     Dates: start: 20081212
  5. TEMSIROLIMUS [Suspect]
     Dosage: DOSAGE REDUCED.
     Route: 042
  6. TEMSIROLIMUS [Suspect]
     Dosage: DOSAGE DECREASED.
     Route: 042
     Dates: start: 20090409
  7. LOKREN [Concomitant]
     Indication: HYPERTENSION
     Dosage: PARTIALLY ILLEGIBLE DRUG NAME: 'LAEREN'
     Dates: start: 19990101
  8. MONOSAN [Concomitant]
     Indication: HYPERTENSION
     Dates: start: 19900101
  9. ANAPYRIN [Concomitant]
     Dosage: PARTIALLY ILLEGIBLE DRUG NAME: 'ARIOOYCIN'
     Dates: start: 19990101
  10. SIMCOR [Concomitant]
     Indication: DYSLIPIDAEMIA
     Dates: start: 19990101
  11. VITACALCIN [Concomitant]
     Indication: OSTEOPENIA
     Dates: start: 20081023
  12. HYDROCORTISONE [Concomitant]
     Dosage: INDICATION NOT LEGIBLE.
     Dates: start: 20081029

REACTIONS (1)
  - PROCTITIS [None]
